FAERS Safety Report 7938808-8 (Version None)
Quarter: 2011Q4

REPORT INFORMATION
  Report Type: 
  Country: None (occurrence: None)
  Receive Date: 20111124
  Receipt Date: 20111118
  Transmission Date: 20120403
  Serious: No
  Sender: FDA-Public Use
  Company Number: US-BIOGENIDEC-2011BI044299

PATIENT
  Sex: Female

DRUGS (1)
  1. TYSABRI [Suspect]
     Indication: MULTIPLE SCLEROSIS
     Route: 042
     Dates: start: 20090915

REACTIONS (4)
  - MUSCLE ATROPHY [None]
  - HYPOAESTHESIA [None]
  - COGNITIVE DISORDER [None]
  - MUSCLE SPASTICITY [None]
